FAERS Safety Report 5678813-8 (Version None)
Quarter: 2008Q1

REPORT INFORMATION
  Report Type: 
  Country: None (occurrence: None)
  Receive Date: 20080324
  Receipt Date: 20080324
  Transmission Date: 20080703
  Serious: Yes (Death)
  Sender: FDA-Public Use
  Company Number: None

PATIENT
  Age: 63 Year
  Sex: Female
  Weight: 77.1115 kg

DRUGS (4)
  1. ELOXATIN [Suspect]
     Indication: CHEMOTHERAPY
     Dosage: FIRST DOSE/THROUGH CHEST PORT
     Dates: start: 20080123, end: 20080123
  2. ELOXATIN [Suspect]
     Indication: COLON CANCER
     Dosage: FIRST DOSE/THROUGH CHEST PORT
     Dates: start: 20080123, end: 20080123
  3. LEUCOVORIN CALCIUM [Suspect]
  4. FLUOROURACIL [Suspect]

REACTIONS (4)
  - MYOCARDIAL INFARCTION [None]
  - POSTOPERATIVE WOUND INFECTION [None]
  - PROCEDURAL COMPLICATION [None]
  - THROMBOSIS [None]
